FAERS Safety Report 4421913-0 (Version None)
Quarter: 2004Q3

REPORT INFORMATION
  Report Type: 
  Country: None (occurrence: None)
  Receive Date: 20040806
  Receipt Date: 20040727
  Transmission Date: 20050211
  Serious: Yes (Other)
  Sender: FDA-Public Use
  Company Number: 2004219165JP

PATIENT
  Age: 74 Year
  Sex: Male

DRUGS (6)
  1. CABERGOLINE [Suspect]
     Indication: PARKINSON'S DISEASE
     Dosage: 2 TO 3 MG, ORAL
     Route: 048
  2. SELEGINILE HYDROCHLORIDE [Concomitant]
  3. MENESIT [Concomitant]
  4. URSO [Concomitant]
  5. TOWAMIN [Concomitant]
  6. AMLODIPINE BESYLATE [Concomitant]

REACTIONS (1)
  - PLEURISY [None]
